FAERS Safety Report 7440856-1 (Version None)
Quarter: 2011Q2

REPORT INFORMATION
  Report Type: 
  Country: None (occurrence: None)
  Receive Date: 20110427
  Receipt Date: 20110421
  Transmission Date: 20111010
  Serious: Yes (Death)
  Sender: FDA-Public Use
  Company Number: CN-GENZYME-CAMP-1001591

PATIENT

DRUGS (9)
  1. FK 506 [Concomitant]
     Indication: IMMUNOSUPPRESSANT DRUG THERAPY
     Dosage: 0.1 MG/KG, UNK ON DAY +2
  2. ACETAMINOPHEN [Concomitant]
     Indication: PREMEDICATION
  3. CAMPATH [Suspect]
     Dosage: 15 MG, ONCE ON DAY +1
     Route: 042
  4. METHYLPREDNISOLONE [Concomitant]
     Dosage: 500 MG, UNK
     Route: 042
  5. CAMPATH [Suspect]
     Indication: RENAL TRANSPLANT
     Dosage: 15 MG, ONCE
     Route: 042
  6. METHYLPREDNISOLONE [Concomitant]
     Indication: PREMEDICATION
     Dosage: 40 MG, UNK
     Route: 042
  7. PREDNISONE [Concomitant]
     Indication: IMMUNOSUPPRESSANT DRUG THERAPY
  8. DIPHENHYDRAMINE [Concomitant]
     Indication: PREMEDICATION
  9. MYCOPHENOLATE MOFETIL [Concomitant]
     Indication: IMMUNOSUPPRESSANT DRUG THERAPY
     Dosage: 0.5 - 1 G BID

REACTIONS (1)
  - ACUTE MYOCARDIAL INFARCTION [None]
